FAERS Safety Report 24797152 (Version 3)
Quarter: 2025Q1

REPORT INFORMATION
  Report Type: Spontaneous
  Country: US (occurrence: US)
  Receive Date: 20250101
  Receipt Date: 20250108
  Transmission Date: 20250409
  Serious: No
  Sender: SANOFI AVENTIS
  Company Number: US-SA-2024SA385928

PATIENT
  Age: 51 Year
  Sex: Female

DRUGS (4)
  1. DUPIXENT [Suspect]
     Active Substance: DUPILUMAB
     Indication: Eczema
     Dosage: 300 MG, QOW
     Route: 065
     Dates: start: 202406
  2. DUPIXENT [Suspect]
     Active Substance: DUPILUMAB
     Indication: Dyspnoea
  3. DULERA [Concomitant]
     Active Substance: FORMOTEROL FUMARATE DIHYDRATE\MOMETASONE FUROATE
  4. VENTOLIN [Concomitant]
     Active Substance: ALBUTEROL SULFATE

REACTIONS (4)
  - Pruritus [Not Recovered/Not Resolved]
  - Accidental exposure to product [Unknown]
  - Exposure via skin contact [Unknown]
  - Off label use [Unknown]

NARRATIVE: CASE EVENT DATE: 20240101
